FAERS Safety Report 5228200-1 (Version None)
Quarter: 2007Q1

REPORT INFORMATION
  Report Type: 
  Country: None (occurrence: None)
  Receive Date: 20070205
  Receipt Date: 20070124
  Transmission Date: 20070707
  Serious: Yes (Other)
  Sender: FDA-Public Use
  Company Number: US-SP-2007-00238

PATIENT
  Age: 64 Year
  Sex: Male

DRUGS (5)
  1. THERACYS [Suspect]
     Indication: BLADDER CANCER
     Route: 043
     Dates: start: 20061228, end: 20070105
  2. THERACYS [Suspect]
     Route: 043
     Dates: start: 20061228, end: 20070105
  3. THERACYS [Suspect]
     Route: 043
     Dates: start: 20061228, end: 20070105
  4. ATENOLOL [Concomitant]
  5. UNSPECIFIED ANTIBIOTIC [Concomitant]

REACTIONS (8)
  - ASTHENIA [None]
  - CHILLS [None]
  - HAEMATURIA [None]
  - HAEMORRHAGE URINARY TRACT [None]
  - MICTURITION URGENCY [None]
  - NAUSEA [None]
  - PYREXIA [None]
  - SKIN DISCOLOURATION [None]
